FAERS Safety Report 4895993-2 (Version None)
Quarter: 2005Q4

REPORT INFORMATION
  Report Type: 
  Country: None (occurrence: None)
  Receive Date: 20051220
  Receipt Date: 20050328
  Transmission Date: 20060501
  Serious: Yes (Other)
  Sender: FDA-Public Use
  Company Number: US106283

PATIENT
  Age: 46 Year
  Sex: Female
  Weight: 59.9 kg

DRUGS (6)
  1. ENBREL [Suspect]
     Indication: RHEUMATOID ARTHRITIS
     Dosage: 50 MG, 1 IN 1 WEEKS, SC
     Route: 058
     Dates: start: 20041124, end: 20041225
  2. LEVOXYL [Concomitant]
  3. LEFLUNOMIDE [Concomitant]
  4. PREDNISONE [Concomitant]
  5. VENLAFAXINE HCL [Concomitant]
  6. ESTRADIOL [Concomitant]

REACTIONS (2)
  - CONVULSION [None]
  - PARAESTHESIA [None]
